FAERS Safety Report 5131574-3 (Version None)
Quarter: 2006Q4

REPORT INFORMATION
  Report Type: 
  Country: None (occurrence: None)
  Receive Date: 20061020
  Receipt Date: 20061011
  Transmission Date: 20070319
  Serious: Yes (Hospitalization)
  Sender: FDA-Public Use
  Company Number: DE-JNJFOC-20061002295

PATIENT
  Age: 44 Year
  Sex: Male

DRUGS (4)
  1. LEVOFLOXACIN [Suspect]
     Indication: INFLUENZA
     Route: 048
  2. IBUPROFEN [Suspect]
     Indication: ABDOMINAL PAIN
     Route: 065
  3. BUSCOPAN PLUS [Suspect]
     Indication: ABDOMINAL PAIN
     Route: 065
  4. LOPERAMID [Concomitant]
     Indication: ABDOMINAL PAIN
     Route: 065

REACTIONS (3)
  - BLINDNESS [None]
  - RASH [None]
  - RETINAL OEDEMA [None]
